FAERS Safety Report 11427297 (Version 1)
Quarter: 2015Q3

REPORT INFORMATION
  Report Type: Spontaneous
  Country: US (occurrence: None)
  Receive Date: 20150826
  Receipt Date: 20150826
  Transmission Date: 20151125
  Serious: Yes (Hospitalization)
  Sender: FDA-Public Use
  Company Number: CC400267145

PATIENT
  Age: 42 Year
  Sex: Female

DRUGS (2)
  1. HEPARIN [Suspect]
     Active Substance: HEPARIN SODIUM
     Indication: PULMONARY EMBOLISM
     Dosage: 80 UNITS/KG IV BOLUS, 18 UNITS/KG PER H
     Route: 040
  2. FONDAPARINUX [Concomitant]
     Active Substance: FONDAPARINUX

REACTIONS (11)
  - Mesenteric artery thrombosis [None]
  - Renal infarct [None]
  - Encephalopathy [None]
  - Antiphospholipid syndrome [None]
  - Intestinal ischaemia [None]
  - Splenic infarction [None]
  - Antiphospholipid antibodies positive [None]
  - Hepatic infarction [None]
  - Femoral artery embolism [None]
  - Heparin-induced thrombocytopenia [None]
  - Cerebral haemorrhage [None]
